FAERS Safety Report 9542299 (Version 2)
Quarter: 2014Q1

REPORT INFORMATION
  Report Type: Spontaneous
  Country: IN (occurrence: None)
  Receive Date: 20130918
  Receipt Date: 20140205
  Transmission Date: 20141002
  Serious: Yes (Other)
  Sender: FDA-Public Use
  Company Number: CO-OR-IN-2013-070

PATIENT
  Age: 16 Year
  Sex: Female

DRUGS (1)
  1. PREDNISOLONE [Suspect]
     Indication: GLOMERULONEPHRITIS MEMBRANOUS

REACTIONS (2)
  - Proteinuria [None]
  - Drug ineffective [None]
